FAERS Safety Report 8555822-2 (Version None)
Quarter: 2012Q3

REPORT INFORMATION
  Report Type: 
  Country: None (occurrence: None)
  Receive Date: 20120801
  Receipt Date: 20120719
  Transmission Date: 20120928
  Serious: No
  Sender: FDA-Public Use
  Company Number: US-BIOGENIDEC-2012BI026690

PATIENT
  Sex: Female

DRUGS (4)
  1. TYLENOL (CAPLET) [Concomitant]
     Indication: PREMEDICATION
     Route: 048
  2. PEPCID [Concomitant]
     Indication: PREMEDICATION
     Route: 048
  3. TYSABRI [Suspect]
     Indication: MULTIPLE SCLEROSIS
     Route: 042
     Dates: start: 20111205
  4. BENADRYL [Concomitant]
     Indication: PREMEDICATION
     Route: 048

REACTIONS (3)
  - PHOTOPHOBIA [None]
  - HYPERTENSION [None]
  - HEADACHE [None]
